FAERS Safety Report 4687941-5 (Version None)
Quarter: 2005Q2

REPORT INFORMATION
  Report Type: 
  Country: None (occurrence: None)
  Receive Date: 20050610
  Receipt Date: 20050601
  Transmission Date: 20051028
  Serious: Yes (Hospitalization)
  Sender: FDA-Public Use
  Company Number: GB-GLAXOSMITHKLINE-B0383051A

PATIENT
  Age: 62 Year
  Sex: Female

DRUGS (5)
  1. ONDANSETRON HYDROCHLORIDE [Suspect]
     Indication: PROPHYLAXIS OF NAUSEA AND VOMITING
     Dosage: 4MG PER DAY
     Route: 048
     Dates: start: 20050411, end: 20050413
  2. CYCLIZINE [Suspect]
     Dates: start: 20050414, end: 20050414
  3. EPIRUBICIN [Suspect]
     Route: 042
     Dates: start: 20050411, end: 20050411
  4. ZOLEDRONIC ACID [Concomitant]
     Route: 042
     Dates: start: 20050321, end: 20050411
  5. CEPHALEXIN [Concomitant]
     Dates: start: 20050406, end: 20050413

REACTIONS (4)
  - CONSTIPATION [None]
  - NAUSEA [None]
  - URINARY TRACT INFECTION [None]
  - VOMITING [None]
